FAERS Safety Report 4673089-2 (Version None)
Quarter: 2005Q2

REPORT INFORMATION
  Report Type: 
  Country: None (occurrence: None)
  Receive Date: 20050524
  Receipt Date: 20050524
  Transmission Date: 20051028
  Serious: Yes (Other)
  Sender: FDA-Public Use
  Company Number: None

PATIENT
  Age: 84 Year
  Sex: Female
  Weight: 72.1219 kg

DRUGS (6)
  1. VYTORIN [Suspect]
     Indication: HYPERLIPIDAEMIA
     Dosage: 40/10  QD ORAL
     Route: 048
     Dates: start: 20050507, end: 20050518
  2. NITROGLYCERIN [Concomitant]
  3. DILTIAZEM [Concomitant]
  4. AMILORIDE [Concomitant]
  5. ASPIRIN [Concomitant]
  6. RANITIDINE [Concomitant]

REACTIONS (2)
  - BALANCE DISORDER [None]
  - HYPERHIDROSIS [None]
